FAERS Safety Report 13277057 (Version 1)
Quarter: 2017Q1

REPORT INFORMATION
  Report Type: Spontaneous
  Country: FR (occurrence: FR)
  Receive Date: 20170228
  Receipt Date: 20170228
  Transmission Date: 20170428
  Serious: Yes (Hospitalization)
  Sender: FDA-Public Use
  Company Number: FR-UCBSA-2017007409

PATIENT
  Age: 59 Year
  Sex: Male

DRUGS (2)
  1. KEPPRA [Suspect]
     Active Substance: LEVETIRACETAM
     Dosage: 500 MG, ONCE DAILY (QD)
     Route: 048
     Dates: start: 20170203
  2. KEPPRA [Suspect]
     Active Substance: LEVETIRACETAM
     Indication: POST-TRAUMATIC EPILEPSY
     Dosage: 500 MG 2/DAY
     Dates: end: 201702

REACTIONS (3)
  - Drug prescribing error [Unknown]
  - Drug dose omission [Unknown]
  - Seizure [Recovered/Resolved]

NARRATIVE: CASE EVENT DATE: 20170203
